FAERS Safety Report 7038856-9 (Version None)
Quarter: 2010Q4

REPORT INFORMATION
  Report Type: 
  Country: None (occurrence: None)
  Receive Date: 20101012
  Receipt Date: 20101001
  Transmission Date: 20110411
  Serious: No
  Sender: FDA-Public Use
  Company Number: 2009BI037413

PATIENT
  Age: 50 Year
  Sex: Female

DRUGS (1)
  1. TYSABRI [Suspect]
     Indication: MULTIPLE SCLEROSIS
     Route: 042
     Dates: start: 20071105

REACTIONS (6)
  - CYSTITIS [None]
  - GAIT DISTURBANCE [None]
  - INFLUENZA [None]
  - MUSCLE SPASMS [None]
  - PHARYNGITIS STREPTOCOCCAL [None]
  - RASH [None]
